FAERS Safety Report 5973479-1 (Version None)
Quarter: 2008Q4

REPORT INFORMATION
  Report Type: 
  Country: None (occurrence: None)
  Receive Date: 20081201
  Receipt Date: 20081119
  Transmission Date: 20090506
  Serious: Yes (Other)
  Sender: FDA-Public Use
  Company Number: US-ELI_LILLY_AND_COMPANY-US200811004879

PATIENT
  Sex: Female
  Weight: 81.633 kg

DRUGS (6)
  1. BYETTA [Suspect]
     Indication: TYPE 2 DIABETES MELLITUS
     Dosage: 5 UG, 2/D
     Route: 058
     Dates: start: 20070401, end: 20070501
  2. BYETTA [Suspect]
     Dosage: 10 UG, 2/D
     Route: 058
     Dates: start: 20070501, end: 20080501
  3. BYETTA [Suspect]
     Dosage: 5 UG, 2/D
     Route: 058
     Dates: start: 20080701, end: 20080701
  4. METFORMIN HCL [Concomitant]
     Indication: TYPE 2 DIABETES MELLITUS
     Dosage: 500 MG, DAILY (1/D)
     Route: 048
     Dates: start: 20080101
  5. COZAAR [Concomitant]
     Dosage: 50 MG, DAILY (1/D)
     Route: 048
  6. ASPIRIN [Concomitant]
     Dosage: 325 MG, DAILY (1/D)
     Route: 048
     Dates: start: 20080101

REACTIONS (5)
  - BLOOD AMYLASE INCREASED [None]
  - DECREASED APPETITE [None]
  - LIPASE INCREASED [None]
  - PANCREATITIS [None]
  - WEIGHT DECREASED [None]
